FAERS Safety Report 20572993 (Version 1)
Quarter: 2022Q1

REPORT INFORMATION
  Report Type: Report from Study
  Country: CN (occurrence: CN)
  Receive Date: 20220309
  Receipt Date: 20220309
  Transmission Date: 20220424
  Serious: Yes (Life-Threatening, Hospitalization)
  Sender: FDA-Public Use
  Company Number: CN-TAKEDA-2020TUS057789

PATIENT
  Age: 57 Year
  Sex: Male

DRUGS (5)
  1. BRIGATINIB [Suspect]
     Active Substance: BRIGATINIB
     Indication: Non-small cell lung cancer
     Dosage: 90 MILLIGRAM, QD
     Route: 048
     Dates: start: 20201210
  2. SILIBININ [Concomitant]
     Active Substance: SILIBININ
     Indication: Liver injury
     Dosage: 35 MILLIGRAM, TID
     Route: 048
     Dates: start: 20201204, end: 20201212
  3. METFORMIN HYDROCHLORIDE [Concomitant]
     Active Substance: METFORMIN HYDROCHLORIDE
     Indication: Blood glucose decreased
     Dosage: 0.5 GRAM, BID
     Route: 048
     Dates: start: 201805, end: 20201212
  4. DEXAMETHASONE ACETATE [Concomitant]
     Active Substance: DEXAMETHASONE ACETATE
     Indication: Interstitial lung disease
     Dosage: 4.5 MILLIGRAM, QD
     Route: 048
     Dates: start: 20201228, end: 20210106
  5. DEXAMETHASONE ACETATE [Concomitant]
     Active Substance: DEXAMETHASONE ACETATE
     Dosage: 2.25 MILLIGRAM, BID
     Route: 048
     Dates: start: 20210107, end: 20210121

REACTIONS (2)
  - Interstitial lung disease [Not Recovered/Not Resolved]
  - Respiratory failure [Not Recovered/Not Resolved]

NARRATIVE: CASE EVENT DATE: 20201212
